FAERS Safety Report 7764791-4 (Version None)
Quarter: 2011Q3

REPORT INFORMATION
  Report Type: 
  Country: None (occurrence: None)
  Receive Date: 20110921
  Receipt Date: 20110921
  Transmission Date: 20111222
  Serious: Yes (Other)
  Sender: FDA-Public Use
  Company Number: None

PATIENT
  Age: 63 Year
  Sex: Male
  Weight: 75.296 kg

DRUGS (1)
  1. CLONAZEPAM [Suspect]

REACTIONS (2)
  - INSOMNIA [None]
  - DRUG INEFFECTIVE [None]
